FAERS Safety Report 9624785 (Version 1)
Quarter: 2013Q4

REPORT INFORMATION
  Report Type: Spontaneous
  Country: US (occurrence: US)
  Receive Date: 20131015
  Receipt Date: 20131015
  Transmission Date: 20140711
  Serious: No
  Sender: FDA-Public Use
  Company Number: US-009507513-1310USA001912

PATIENT
  Age: 31 Year
  Sex: Female

DRUGS (1)
  1. NEXPLANON [Suspect]
     Indication: CONTRACEPTION
     Dosage: UNK
     Route: 059
     Dates: start: 20130701

REACTIONS (6)
  - Neuralgia [Unknown]
  - Adverse event [Unknown]
  - Hypersensitivity [Unknown]
  - Pain in extremity [Unknown]
  - Muscle spasms [Unknown]
  - Swollen tongue [Unknown]
